FAERS Safety Report 4879186-0 (Version None)
Quarter: 2006Q1

REPORT INFORMATION
  Report Type: 
  Country: None (occurrence: None)
  Receive Date: 20060112
  Receipt Date: 20040517
  Transmission Date: 20060701
  Serious: Yes (Death)
  Sender: FDA-Public Use
  Company Number: GB-ROCHE-367743

PATIENT
  Age: 56 Year
  Sex: Male

DRUGS (10)
  1. CAPECITABINE [Suspect]
     Route: 048
     Dates: start: 20030811, end: 20031124
  2. EPIRUBICIN [Suspect]
     Route: 040
     Dates: start: 20030811, end: 20031124
  3. CISPLATIN [Suspect]
     Route: 042
     Dates: start: 20030811, end: 20031124
  4. MST [Concomitant]
     Route: 048
  5. SENNA [Concomitant]
     Route: 048
  6. LACTULOSE [Concomitant]
     Route: 048
  7. PARACETAMOL [Concomitant]
     Route: 048
  8. MAXOLON [Concomitant]
     Route: 048
  9. DEXAMETHASONE TAB [Concomitant]
     Route: 048
  10. SANDO K [Concomitant]
     Route: 048

REACTIONS (7)
  - DYSPHAGIA [None]
  - HEPATIC FUNCTION ABNORMAL [None]
  - MALIGNANT NEOPLASM PROGRESSION [None]
  - OBSTRUCTIVE AIRWAYS DISORDER [None]
  - OESOPHAGEAL CARCINOMA [None]
  - RENAL IMPAIRMENT [None]
  - RESPIRATORY ARREST [None]
